FAERS Safety Report 9661137 (Version 2)
Quarter: 2013Q4

REPORT INFORMATION
  Report Type: Spontaneous
  Country: RS (occurrence: RS)
  Receive Date: 20131031
  Receipt Date: 20131031
  Transmission Date: 20140711
  Serious: Yes (Life-Threatening, Hospitalization, Other)
  Sender: FDA-Public Use
  Company Number: RS-009507513-1310SRB005820

PATIENT
  Age: 4 Year
  Sex: Female
  Weight: 19 kg

DRUGS (5)
  1. ESMERON [Suspect]
     Indication: HYPOTONIA
     Dosage: UNK, BOLUS
     Route: 042
     Dates: start: 20130710, end: 20130710
  2. ATROPINE [Concomitant]
     Indication: PREMEDICATION
     Dosage: BOLUS
     Route: 042
  3. NESDONAL [Concomitant]
     Indication: ANAESTHESIA
     Dosage: BOLUS
     Route: 042
  4. FLORMIDAL [Concomitant]
     Indication: PREMEDICATION
     Route: 048
  5. FENTORA [Concomitant]
     Indication: ANALGESIC THERAPY
     Dosage: BOLUS
     Route: 042

REACTIONS (4)
  - Drug hypersensitivity [Recovered/Resolved]
  - Atelectasis [Recovered/Resolved]
  - Bronchospasm [Recovered/Resolved]
  - Salivary hypersecretion [Unknown]
